FAERS Safety Report 13937185 (Version 1)
Quarter: 2017Q3

REPORT INFORMATION
  Report Type: Spontaneous
  Country: US (occurrence: US)
  Receive Date: 20170905
  Receipt Date: 20170905
  Transmission Date: 20171127
  Serious: No
  Sender: FDA-Public Use
  Company Number: US-PFIZER INC-2017381886

PATIENT
  Age: 32 Year
  Sex: Male

DRUGS (2)
  1. CHANTIX [Suspect]
     Active Substance: VARENICLINE TARTRATE
     Indication: SMOKING CESSATION THERAPY
     Dosage: UNK
     Route: 048
     Dates: start: 2017
  2. CHANTIX [Suspect]
     Active Substance: VARENICLINE TARTRATE
     Dosage: 1 MG, 2X/DAY
     Route: 048
     Dates: start: 201708

REACTIONS (10)
  - Pharyngeal oedema [Recovering/Resolving]
  - Muscle spasms [Recovering/Resolving]
  - Grip strength decreased [Recovering/Resolving]
  - Abdominal pain upper [Recovering/Resolving]
  - Hallucination [Recovered/Resolved]
  - Dysgeusia [Recovering/Resolving]
  - Hypoaesthesia [Recovering/Resolving]
  - Headache [Recovering/Resolving]
  - Nausea [Recovering/Resolving]
  - Anger [Recovered/Resolved]

NARRATIVE: CASE EVENT DATE: 2017
